FAERS Safety Report 11277999 (Version 4)
Quarter: 2015Q3

REPORT INFORMATION
  Report Type: Report from Study
  Country: IT (occurrence: IT)
  Receive Date: 20150717
  Receipt Date: 20150923
  Transmission Date: 20151125
  Serious: Yes (Life-Threatening, Hospitalization)
  Sender: FDA-Public Use
  Company Number: IT-ROCHE-1608463

PATIENT
  Age: 65 Year
  Sex: Female
  Weight: 60 kg

DRUGS (4)
  1. BEVACIZUMAB [Suspect]
     Active Substance: BEVACIZUMAB
     Indication: BREAST CANCER METASTATIC
     Route: 050
     Dates: start: 20150130, end: 20150626
  2. BEVACIZUMAB [Suspect]
     Active Substance: BEVACIZUMAB
     Dosage: PERMANENTLY DISCONTINUED ON 03/JUL/2015
     Route: 050
     Dates: end: 20150703
  3. HALAVEN [Suspect]
     Active Substance: ERIBULIN MESYLATE
     Dosage: PERMANENTLY DISCONTINUED ON 03/JUL/2015
     Route: 050
     Dates: end: 20150703
  4. HALAVEN [Suspect]
     Active Substance: ERIBULIN MESYLATE
     Indication: BREAST CANCER METASTATIC
     Route: 050
     Dates: start: 20150130, end: 20150626

REACTIONS (2)
  - Noninfective sialoadenitis [Recovered/Resolved]
  - Hypertransaminasaemia [Recovered/Resolved]

NARRATIVE: CASE EVENT DATE: 20150703
